FAERS Safety Report 16053609 (Version 2)
Quarter: 2019Q1

REPORT INFORMATION
  Report Type: Report from Study
  Country: US (occurrence: US)
  Receive Date: 20190308
  Receipt Date: 20190327
  Transmission Date: 20190418
  Serious: Yes (Other)
  Sender: FDA-Public Use
  Company Number: US-GILEAD-2019-0395456

PATIENT
  Age: 68 Year
  Sex: Female
  Weight: 76.64 kg

DRUGS (19)
  1. SINGULAIR [Concomitant]
     Active Substance: MONTELUKAST SODIUM
  2. CENTRUM SILVER +50 [Concomitant]
  3. AMBRISENTAN [Suspect]
     Active Substance: AMBRISENTAN
     Indication: INTERSTITIAL LUNG DISEASE
     Dosage: 5 MG, QD
     Route: 065
     Dates: start: 20170411, end: 20190218
  4. LIPITOR [Concomitant]
     Active Substance: ATORVASTATIN CALCIUM
  5. ZYRTEC [Concomitant]
     Active Substance: CETIRIZINE HYDROCHLORIDE
  6. TOPROL XL [Concomitant]
     Active Substance: METOPROLOL SUCCINATE
  7. TYLENOL 8HR [Concomitant]
     Active Substance: ACETAMINOPHEN
  8. BIOTIN [Concomitant]
     Active Substance: BIOTIN
  9. PREMARIN [Concomitant]
     Active Substance: ESTROGENS, CONJUGATED
  10. VITAMIN D3 [Concomitant]
     Active Substance: CHOLECALCIFEROL
  11. CLARITIN ALLERGIC [Concomitant]
  12. VIACTIV CALCIUM PLUS VITAMIN D + K [Concomitant]
  13. OCEAN NASAL [Concomitant]
  14. ULTRAM ER [Concomitant]
     Active Substance: TRAMADOL HYDROCHLORIDE
  15. COUMADIN [Concomitant]
     Active Substance: WARFARIN SODIUM
  16. AMBRISENTAN [Suspect]
     Active Substance: AMBRISENTAN
     Indication: PULMONARY HYPERTENSION
  17. ALBUTEROL HFA [Concomitant]
     Active Substance: ALBUTEROL SULFATE
  18. FLUTICASONE. [Concomitant]
     Active Substance: FLUTICASONE
  19. ADCIRCA [Concomitant]
     Active Substance: TADALAFIL

REACTIONS (1)
  - Interstitial lung disease [Not Recovered/Not Resolved]
